FAERS Safety Report 15517061 (Version 1)
Quarter: 2018Q4

REPORT INFORMATION
  Report Type: Spontaneous
  Country: US (occurrence: US)
  Receive Date: 20181018
  Receipt Date: 20181018
  Transmission Date: 20190205
  Serious: Yes (Hospitalization)
  Sender: FDA-Public Use
  Company Number: None

PATIENT
  Age: 60 Year
  Sex: Female

DRUGS (11)
  1. ACCU-CHECK AVIVA [Concomitant]
  2. ZOFRAN [Concomitant]
     Active Substance: ONDANSETRON HYDROCHLORIDE
  3. OXYCODONE [Concomitant]
     Active Substance: OXYCODONE
  4. TOPIRAMATE. [Concomitant]
     Active Substance: TOPIRAMATE
  5. NARCAN SPRAY [Concomitant]
  6. MORPHINE SULFATE. [Concomitant]
     Active Substance: MORPHINE SULFATE
  7. LIDODERM [Concomitant]
     Active Substance: LIDOCAINE
  8. FORTEO [Suspect]
     Active Substance: TERIPARATIDE
     Indication: SPONDYLOARTHROPATHY
     Route: 058
     Dates: start: 20180924
  9. LISINOPRIL. [Concomitant]
     Active Substance: LISINOPRIL
  10. TIZANIDINE. [Concomitant]
     Active Substance: TIZANIDINE
  11. GABAPENTIN. [Concomitant]
     Active Substance: GABAPENTIN

REACTIONS (1)
  - Spinal operation [None]

NARRATIVE: CASE EVENT DATE: 20181008
